FAERS Safety Report 15720373 (Version 1)
Quarter: 2018Q4

REPORT INFORMATION
  Report Type: Spontaneous
  Country: PL (occurrence: PL)
  Receive Date: 20181213
  Receipt Date: 20181213
  Transmission Date: 20190205
  Serious: Yes (Other)
  Sender: FDA-Public Use
  Company Number: PL-MYLANLABS-2018M1090666

PATIENT
  Age: 4 Year
  Sex: Female

DRUGS (10)
  1. TETRACOSACTIDE [Suspect]
     Active Substance: COSYNTROPIN
     Indication: PRODUCT USED FOR UNKNOWN INDICATION
     Dosage: FOR 1 WEEK
     Route: 065
  2. TETRACOSACTIDE [Suspect]
     Active Substance: COSYNTROPIN
     Dosage: 0.5 MILLIGRAM
     Route: 030
  3. METHYLPREDNISOLONE. [Suspect]
     Active Substance: METHYLPREDNISOLONE
     Indication: PRODUCT USED FOR UNKNOWN INDICATION
     Dosage: 6X500 MG
     Route: 042
  4. IMMUNOGLOBULINS [Concomitant]
     Active Substance: IMMUNE GLOBULIN NOS
     Dosage: 2 G/KG TOTAL DOSE
     Route: 042
  5. IMMUNOGLOBULINS [Concomitant]
     Active Substance: IMMUNE GLOBULIN NOS
     Dosage: 2G/KG
     Route: 042
     Dates: start: 2015
  6. IMMUNOGLOBULINS [Concomitant]
     Active Substance: IMMUNE GLOBULIN NOS
     Dosage: 2 G/KG
     Route: 042
     Dates: start: 2016
  7. DEFLAZACORT [Suspect]
     Active Substance: DEFLAZACORT
     Indication: AUTOIMMUNE HEPATITIS
     Dosage: UNK
     Route: 065
  8. PREDNISONE. [Suspect]
     Active Substance: PREDNISONE
     Indication: AUTOIMMUNE HEPATITIS
     Dosage: UNK
     Route: 065
  9. TETRACOSACTIDE [Suspect]
     Active Substance: COSYNTROPIN
     Dosage: UNK
     Route: 065
  10. IMMUNOGLOBULINS [Concomitant]
     Active Substance: IMMUNE GLOBULIN NOS
     Dosage: 1 G/KG PER COURSE
     Route: 042
     Dates: end: 201409

REACTIONS (2)
  - Drug dependence [Unknown]
  - Weight increased [Unknown]
